FAERS Safety Report 12109789 (Version 1)
Quarter: 2016Q1

REPORT INFORMATION
  Report Type: Spontaneous
  Country: US (occurrence: US)
  Receive Date: 20160224
  Receipt Date: 20160224
  Transmission Date: 20160526
  Serious: No
  Sender: FDA-Public Use
  Company Number: US-MYLANLABS-2015M1016578

PATIENT
  Age: 62 Year
  Sex: Female
  Weight: 92.52 kg

DRUGS (3)
  1. DIVALPROEX SODIUM. [Suspect]
     Active Substance: DIVALPROEX SODIUM
     Indication: ANXIETY
     Dosage: 1000 MG, QD
     Route: 048
     Dates: start: 2013, end: 20150401
  2. DIVALPROEX SODIUM. [Suspect]
     Active Substance: DIVALPROEX SODIUM
     Indication: OFF LABEL USE
     Dosage: 500 MG, QD
     Route: 048
     Dates: start: 20150401, end: 20150406
  3. ZOLOFT [Concomitant]
     Active Substance: SERTRALINE HYDROCHLORIDE
     Indication: DEPRESSION
     Dosage: 200 MG, QD
     Dates: start: 2014

REACTIONS (3)
  - Hyperhidrosis [Not Recovered/Not Resolved]
  - Irritability [Recovered/Resolved]
  - Chills [Not Recovered/Not Resolved]

NARRATIVE: CASE EVENT DATE: 20100502
